FAERS Safety Report 20008465 (Version 1)
Quarter: 2021Q4

REPORT INFORMATION
  Report Type: Spontaneous
  Country: US (occurrence: US)
  Receive Date: 20211028
  Receipt Date: 20211028
  Transmission Date: 20220303
  Serious: Yes (Life-Threatening, Other)
  Sender: FDA-Public Use
  Company Number: US-SLATE RUN PHARMACEUTICALS-21US000738

PATIENT

DRUGS (6)
  1. AZITHROMYCIN [Suspect]
     Active Substance: AZITHROMYCIN
     Indication: Maternal exposure timing unspecified
     Dosage: 500 MILLIGRAM, QD
     Route: 015
  2. REMDESIVIR [Concomitant]
     Active Substance: REMDESIVIR
     Indication: Maternal exposure timing unspecified
     Route: 015
  3. DEXAMETHASONE [Concomitant]
     Active Substance: DEXAMETHASONE
     Indication: Maternal exposure timing unspecified
     Route: 015
  4. COVID-19 CONVALESCENT PLASMA [Concomitant]
     Active Substance: COVID-19 CONVALESCENT PLASMA
     Indication: Maternal exposure timing unspecified
     Route: 015
  5. CEFTRIAXONE [Concomitant]
     Active Substance: CEFTRIAXONE
     Indication: Maternal exposure timing unspecified
     Dosage: 1 GRAM, QD
     Route: 015
  6. BETAMETHASONE [Concomitant]
     Active Substance: BETAMETHASONE
     Indication: Maternal exposure timing unspecified
     Dosage: 12 MILLIGRAM, QD (2 DOSES)
     Route: 015

REACTIONS (3)
  - Bradycardia foetal [Recovered/Resolved]
  - Premature baby [Recovered/Resolved]
  - Foetal exposure during pregnancy [Recovered/Resolved]
